FAERS Safety Report 16259751 (Version 1)
Quarter: 2019Q2

REPORT INFORMATION
  Report Type: Spontaneous
  Country: US (occurrence: US)
  Receive Date: 20190501
  Receipt Date: 20190501
  Transmission Date: 20190711
  Serious: Yes (Other)
  Sender: FDA-Public Use
  Company Number: US-ASTRAZENECA-2019SE04909

PATIENT
  Age: 25733 Day
  Sex: Female
  Weight: 86.2 kg

DRUGS (2)
  1. BYDUREON [Suspect]
     Active Substance: EXENATIDE
     Route: 058
     Dates: start: 201804
  2. BYDUREON BCISE [Suspect]
     Active Substance: EXENATIDE
     Route: 065
     Dates: start: 20181015

REACTIONS (3)
  - Injection site extravasation [Recovering/Resolving]
  - Injection site mass [Recovering/Resolving]
  - Injection site nodule [Unknown]

NARRATIVE: CASE EVENT DATE: 20181016
